FAERS Safety Report 5922249-9 (Version None)
Quarter: 2008Q4

REPORT INFORMATION
  Report Type: 
  Country: None (occurrence: None)
  Receive Date: 20081017
  Receipt Date: 20081010
  Transmission Date: 20090506
  Serious: Yes (Hospitalization)
  Sender: FDA-Public Use
  Company Number: GB-AVENTIS-200819567GDDC

PATIENT
  Age: 53 Year
  Sex: Male
  Weight: 113.4 kg

DRUGS (1)
  1. GLIMEPIRIDE [Suspect]
     Route: 048
     Dates: start: 20050920

REACTIONS (2)
  - CONCOMITANT DISEASE PROGRESSION [None]
  - INTERSTITIAL LUNG DISEASE [None]
